FAERS Safety Report 9016479 (Version 1)
Quarter: 2013Q1

REPORT INFORMATION
  Report Type: Spontaneous
  Country: US (occurrence: US)
  Receive Date: 20130116
  Receipt Date: 20130116
  Transmission Date: 20140127
  Serious: Yes (Death, Other)
  Sender: FDA-Public Use
  Company Number: US-TEVA-380390USA

PATIENT
  Sex: Female
  Weight: 72.64 kg

DRUGS (8)
  1. DEXTROAMPHETAMINE SULFATE [Suspect]
     Indication: BIPOLAR DISORDER
  2. OMEPRAZOLE [Suspect]
  3. SEROQUEL [Suspect]
  4. GABAPENTIN [Suspect]
     Dosage: 900 MILLIGRAM DAILY;
  5. OXYCODONE [Suspect]
     Dosage: EVERY 4-6 HOURS
  6. ZOLOFT [Suspect]
  7. HYDROCHLOROTHIAZIDE [Suspect]
  8. LEVAQUIN [Suspect]

REACTIONS (5)
  - Toxicity to various agents [Fatal]
  - Pneumonia [Unknown]
  - Diarrhoea [Unknown]
  - Dehydration [Unknown]
  - Chromaturia [Unknown]
